FAERS Safety Report 19150907 (Version 1)
Quarter: 2021Q2

REPORT INFORMATION
  Report Type: Spontaneous
  Country: PL (occurrence: PL)
  Receive Date: 20210419
  Receipt Date: 20210419
  Transmission Date: 20210717
  Serious: Yes (Other)
  Sender: FDA-Public Use
  Company Number: PL-LUPIN PHARMACEUTICALS INC.-2021-04785

PATIENT
  Age: 29 Year
  Sex: Female

DRUGS (3)
  1. OXYTOCIN. [Suspect]
     Active Substance: OXYTOCIN
     Indication: POSTPARTUM HAEMORRHAGE
     Dosage: UNK
     Route: 065
  2. MISOPROSTOL. [Suspect]
     Active Substance: MISOPROSTOL
     Indication: POSTPARTUM HAEMORRHAGE
     Dosage: UNK
     Route: 065
  3. NALADOR [Suspect]
     Active Substance: SULPROSTONE
     Indication: POSTPARTUM HAEMORRHAGE
     Dosage: UNK
     Route: 065

REACTIONS (2)
  - Drug ineffective for unapproved indication [Unknown]
  - Off label use [Unknown]
